FAERS Safety Report 6292960-1 (Version None)
Quarter: 2009Q3

REPORT INFORMATION
  Report Type: 
  Country: None (occurrence: None)
  Receive Date: 20090731
  Receipt Date: 20090723
  Transmission Date: 20100115
  Serious: Yes (Hospitalization)
  Sender: FDA-Public Use
  Company Number: US-GENENTECH-287620

PATIENT
  Sex: Female

DRUGS (4)
  1. BEVACIZUMAB [Suspect]
     Indication: BREAST CANCER
     Dosage: 1080 MG, Q3W
     Route: 042
     Dates: start: 20090414, end: 20090722
  2. TRASTUZUMAB [Suspect]
     Indication: BREAST CANCER
     Dosage: 432 MG, Q3W
     Route: 042
     Dates: start: 20090414, end: 20090722
  3. CARBOPLATIN [Suspect]
     Indication: BREAST CANCER
     Dosage: 665 MG, Q3W
     Route: 042
     Dates: start: 20090414, end: 20090722
  4. DOCETAXEL [Suspect]
     Indication: BREAST CANCER
     Dosage: 136 MG, Q3W
     Route: 042
     Dates: start: 20090414, end: 20090722

REACTIONS (1)
  - HOSPITALISATION [None]
